FAERS Safety Report 11404487 (Version 4)
Quarter: 2015Q4

REPORT INFORMATION
  Report Type: Spontaneous
  Country: US (occurrence: US)
  Receive Date: 20150821
  Receipt Date: 20151217
  Transmission Date: 20160304
  Serious: Yes (Death, Other)
  Sender: FDA-Public Use
  Company Number: US-CELGENE-USA-2015083210

PATIENT
  Age: 80 Year
  Sex: Female

DRUGS (1)
  1. REVLIMID [Suspect]
     Active Substance: LENALIDOMIDE
     Indication: PLASMA CELL MYELOMA
     Dosage: 25 MILLIGRAM
     Route: 048
     Dates: start: 20141126, end: 201508

REACTIONS (3)
  - Diffuse large B-cell lymphoma [Unknown]
  - Cardiopulmonary failure [Fatal]
  - Renal failure [Fatal]

NARRATIVE: CASE EVENT DATE: 201508
